FAERS Safety Report 25259983 (Version 4)
Quarter: 2025Q3

REPORT INFORMATION
  Report Type: Spontaneous
  Country: JP (occurrence: JP)
  Receive Date: 20250501
  Receipt Date: 20250701
  Transmission Date: 20251020
  Serious: Yes (Other)
  Sender: TAKEDA
  Company Number: JP-JNJFOC-20250440426

PATIENT
  Age: 80 Year
  Sex: Female

DRUGS (6)
  1. VELCADE [Suspect]
     Active Substance: BORTEZOMIB
     Indication: Plasma cell myeloma
  2. DEXAMETHASONE [Suspect]
     Active Substance: DEXAMETHASONE
     Indication: Plasma cell myeloma
  3. DARATUMUMAB [Suspect]
     Active Substance: DARATUMUMAB
     Indication: Plasma cell myeloma
  4. DARATUMUMAB [Suspect]
     Active Substance: DARATUMUMAB
  5. LENALIDOMIDE HEMIHYDRATE [Suspect]
     Active Substance: LENALIDOMIDE HEMIHYDRATE
     Indication: Plasma cell myeloma
  6. IXAZOMIB CITRATE [Concomitant]
     Active Substance: IXAZOMIB CITRATE
     Indication: Product used for unknown indication

REACTIONS (4)
  - Plasma cell myeloma [Unknown]
  - Liver disorder [Unknown]
  - Rash [Unknown]
  - Pyrexia [Unknown]

NARRATIVE: CASE EVENT DATE: 20211001
